FAERS Safety Report 5121485-1 (Version None)
Quarter: 2006Q4

REPORT INFORMATION
  Report Type: 
  Country: None (occurrence: None)
  Receive Date: 20061006
  Receipt Date: 20061003
  Transmission Date: 20070319
  Serious: Yes (Death, Disabling)
  Sender: FDA-Public Use
  Company Number: PHBS2006MX15322

PATIENT
  Sex: Female

DRUGS (1)
  1. STALEVO 100 [Suspect]
     Indication: PARKINSON'S DISEASE
     Route: 065

REACTIONS (7)
  - DECUBITUS ULCER [None]
  - DISEASE PROGRESSION [None]
  - DYSPHAGIA [None]
  - GASTROSTOMY [None]
  - IMMOBILE [None]
  - PARKINSONISM [None]
  - PNEUMONIA [None]
